FAERS Safety Report 26097732 (Version 2)
Quarter: 2025Q4

REPORT INFORMATION
  Report Type: Spontaneous
  Country: CN (occurrence: CN)
  Receive Date: 20251127
  Receipt Date: 20251202
  Transmission Date: 20260118
  Serious: No
  Sender: AMGEN
  Company Number: CN-AMGEN-CHNSP2025234260

PATIENT
  Age: 59 Year
  Sex: Female
  Weight: 52 kg

DRUGS (3)
  1. XGEVA [Suspect]
     Active Substance: DENOSUMAB
     Indication: Breast cancer
     Dosage: 120 MILLIGRAM (01, 28) (INTRAVENOUS INFUSION)
     Route: 040
     Dates: start: 20251030, end: 20251030
  2. TRASTUZUMAB DERUXTECAN [Suspect]
     Active Substance: TRASTUZUMAB DERUXTECAN
     Indication: Breast cancer
     Dosage: 100 MILLIGRAM (01, 14) (INTRAVENOUS INFUSION)
     Route: 040
     Dates: start: 20251030, end: 20251030
  3. AZASETRON HYDROCHLORIDE [Concomitant]
     Active Substance: AZASETRON HYDROCHLORIDE
     Indication: Nausea
     Dosage: 20 MILLIGRAM (01,01)
     Route: 040
     Dates: start: 20251030, end: 20251030

REACTIONS (2)
  - Hepatic function abnormal [Recovering/Resolving]
  - Fatigue [Recovering/Resolving]

NARRATIVE: CASE EVENT DATE: 20251030
